FAERS Safety Report 8985701 (Version 2)
Quarter: 2013Q3

REPORT INFORMATION
  Report Type: Report from Study
  Country: JP (occurrence: JP)
  Receive Date: 20121226
  Receipt Date: 20130729
  Transmission Date: 20140515
  Serious: Yes (Hospitalization)
  Sender: FDA-Public Use
  Company Number: JP-SHIRE-ALL1-2012-06411

PATIENT
  Age: 66 Year
  Sex: Female

DRUGS (4)
  1. 405 (LANTHANUM CARBONATE) [Suspect]
     Indication: HYPERPHOSPHATAEMIA
     Dosage: 750 MG, UNKNOWN (IMMEDIATELY AFTER MEALS)
     Route: 048
     Dates: start: 20100915
  2. CALTAN [Concomitant]
     Indication: HYPERPHOSPHATAEMIA
     Dosage: 1000 MG, UNKNOWN
     Route: 048
     Dates: start: 20100714
  3. ONEALFA [Concomitant]
     Indication: PRODUCT USED FOR UNKNOWN INDICATION
     Dosage: 0.5 ?G, UNKNOWN
     Route: 048
     Dates: start: 20100407
  4. MARZULENE S [Concomitant]
     Indication: PRODUCT USED FOR UNKNOWN INDICATION
     Dosage: 2 G, UNKNOWN
     Route: 048

REACTIONS (2)
  - Shunt stenosis [Recovering/Resolving]
  - Bradycardia [Recovered/Resolved]
